FAERS Safety Report 25738516 (Version 3)
Quarter: 2025Q3

REPORT INFORMATION
  Report Type: Spontaneous
  Country: US (occurrence: US)
  Receive Date: 20250829
  Receipt Date: 20250929
  Transmission Date: 20251021
  Serious: No
  Sender: AMGEN
  Company Number: US-PFIZER INC-202500171037

PATIENT
  Age: 46 Year
  Sex: Male

DRUGS (1)
  1. ENBREL [Suspect]
     Active Substance: ETANERCEPT
     Indication: Rheumatoid arthritis
     Route: 065

REACTIONS (1)
  - Drug ineffective [Unknown]
